FAERS Safety Report 8918643 (Version 1)
Quarter: 2012Q4

REPORT INFORMATION
  Report Type: 
  Country: US (occurrence: US)
  Receive Date: 20121120
  Receipt Date: 20121120
  Transmission Date: 20130627
  Serious: Yes (Other)
  Sender: FDA-Public Use
  Company Number: US-ASTRAZENECA-2012SE20568

PATIENT
  Age: 54 Year
  Sex: Female
  Weight: 60.8 kg

DRUGS (9)
  1. NEXIUM [Suspect]
     Indication: DIARRHOEA
     Route: 048
  2. NEXIUM [Suspect]
     Indication: HERNIA
     Route: 048
  3. NEXIUM [Suspect]
     Indication: COLONIC POLYP
     Route: 048
  4. NEXIUM [Suspect]
     Indication: MUSCLE SPASMS
     Route: 048
  5. ATORVASTATIN [Concomitant]
  6. MELOXICAM [Concomitant]
  7. FISH OIL [Concomitant]
  8. CALCIUM [Concomitant]
  9. VITAMIN D [Concomitant]

REACTIONS (2)
  - Rib fracture [Unknown]
  - Off label use [Unknown]
